FAERS Safety Report 18104308 (Version 1)
Quarter: 2020Q3

REPORT INFORMATION
  Report Type: Spontaneous
  Country: HR (occurrence: HR)
  Receive Date: 20200803
  Receipt Date: 20200803
  Transmission Date: 20201103
  Serious: Yes (Other)
  Sender: FDA-Public Use
  Company Number: NVSC2020HR214387

PATIENT
  Age: 67 Year
  Sex: Male
  Weight: 98 kg

DRUGS (5)
  1. DIAZEPAM ALKALOID [Concomitant]
     Indication: BACK PAIN
     Dosage: 5 MG, QD
     Route: 048
     Dates: start: 20200703
  2. NAKLOFEN [Interacting]
     Active Substance: DICLOFENAC SODIUM
     Indication: BACK PAIN
     Dosage: 75 MG, QD
     Route: 030
     Dates: start: 20200703, end: 20200703
  3. DICLAC DUO [Suspect]
     Active Substance: DICLOFENAC SODIUM
     Indication: BACK PAIN
     Dosage: 150 MG, QD
     Route: 048
     Dates: start: 20200703, end: 20200703
  4. PRILEN AM [Interacting]
     Active Substance: AMLODIPINE\RAMIPRIL
     Indication: ESSENTIAL HYPERTENSION
     Dosage: 1 DF, QD (1 DF= 5 MG RAMIPRILA I 5 MG AMLODIPINA)
     Route: 048
     Dates: start: 20191014
  5. CONCOR [Concomitant]
     Active Substance: BISOPROLOL FUMARATE
     Indication: ESSENTIAL HYPERTENSION
     Dosage: 5 MG, QD
     Route: 048
     Dates: start: 20171213

REACTIONS (3)
  - Oedema peripheral [Recovering/Resolving]
  - Drug interaction [Unknown]
  - Myalgia [Recovering/Resolving]

NARRATIVE: CASE EVENT DATE: 2020
